FAERS Safety Report 8531681-9 (Version None)
Quarter: 2012Q3

REPORT INFORMATION
  Report Type: 
  Country: None (occurrence: None)
  Receive Date: 20120723
  Receipt Date: 20120712
  Transmission Date: 20120928
  Serious: Yes (Death, Hospitalization, Other)
  Sender: FDA-Public Use
  Company Number: US-009507513-2012SP011826

PATIENT

DRUGS (3)
  1. NUVARING [Suspect]
     Indication: CONTRACEPTION
     Dosage: UNK
     Route: 067
     Dates: start: 20081001
  2. NUVARING [Suspect]
     Dosage: UNK
     Route: 067
     Dates: start: 20100709, end: 20110926
  3. NUVARING [Suspect]
     Dosage: UNK
     Route: 067
     Dates: start: 20091009

REACTIONS (4)
  - PULMONARY EMBOLISM [None]
  - PNEUMONIA [None]
  - DIABETES MELLITUS [None]
  - DIARRHOEA [None]
